FAERS Safety Report 4636481-8 (Version None)
Quarter: 2005Q2

REPORT INFORMATION
  Report Type: 
  Country: None (occurrence: None)
  Receive Date: 20050414
  Receipt Date: 20050414
  Transmission Date: 20051028
  Serious: Yes (Other)
  Sender: FDA-Public Use
  Company Number: None

PATIENT
  Age: 73 Year
  Sex: Female
  Weight: 106.5953 kg

DRUGS (14)
  1. CYTOXAN [Suspect]
     Indication: BREAST CANCER
     Dosage: PER BB-IND 10312
     Dates: start: 20050316
  2. DIFLUCAN [Suspect]
     Indication: SKIN CANDIDA
     Dosage: 200 MG X1
     Dates: start: 20050405
  3. VACCINE [Suspect]
     Dosage: 100 MG X 6
  4. ALPHA-INTERFERON [Suspect]
     Dosage: PO
     Route: 048
  5. METFORMIN [Concomitant]
  6. NORVASC [Concomitant]
  7. LIPITOR [Concomitant]
  8. LEXAPRO [Concomitant]
  9. LANTUS [Concomitant]
  10. AVANDAMET [Concomitant]
  11. CLARITIN [Concomitant]
  12. BENADRYL [Concomitant]
  13. DIFLUCAN [Concomitant]
  14. ALLEGRA [Concomitant]

REACTIONS (6)
  - BREAST CANCER FEMALE [None]
  - INJECTION SITE DISCOLOURATION [None]
  - INTERTRIGO CANDIDA [None]
  - PRURITUS GENERALISED [None]
  - RASH GENERALISED [None]
  - URTICARIA [None]
